FAERS Safety Report 12737396 (Version 1)
Quarter: 2016Q3

REPORT INFORMATION
  Report Type: Spontaneous
  Country: US (occurrence: US)
  Receive Date: 20160912
  Receipt Date: 20160912
  Transmission Date: 20161109
  Serious: Yes (Other)
  Sender: FDA-Public Use
  Company Number: None

PATIENT
  Age: 63 Year
  Sex: Female
  Weight: 58.5 kg

DRUGS (5)
  1. VERAPAMIL [Concomitant]
     Active Substance: VERAPAMIL HYDROCHLORIDE
  2. LINSINOPRILL [Concomitant]
  3. BURRPION HYDROCHLORIDE ER [Concomitant]
  4. ASPIRIN. [Concomitant]
     Active Substance: ASPIRIN
  5. QUETIAPINE FUMARATE 50 MG TAB [Suspect]
     Active Substance: QUETIAPINE FUMARATE
     Indication: SLEEP DISORDER
     Route: 048
     Dates: start: 20160830, end: 20160905

REACTIONS (5)
  - Irritability [None]
  - Suicidal ideation [None]
  - Feeling abnormal [None]
  - Crying [None]
  - Product substitution issue [None]

NARRATIVE: CASE EVENT DATE: 20160830
